FAERS Safety Report 9749138 (Version 1)
Quarter: 2013Q4

REPORT INFORMATION
  Report Type: Spontaneous
  Country: US (occurrence: US)
  Receive Date: 20131212
  Receipt Date: 20131212
  Transmission Date: 20140711
  Serious: No
  Sender: FDA-Public Use
  Company Number: US-TEVA-393265USA

PATIENT
  Age: 17 Year
  Sex: Female
  Weight: 70.82 kg

DRUGS (3)
  1. PARAGARD 380A [Suspect]
     Indication: CONTRACEPTION
     Route: 015
     Dates: start: 20120911, end: 20130317
  2. LAMICTAL [Concomitant]
     Indication: BIPOLAR DISORDER
     Dosage: 100 MILLIGRAM DAILY;
     Route: 048
  3. VIVANCE [Concomitant]
     Indication: ATTENTION DEFICIT/HYPERACTIVITY DISORDER
     Dosage: 50 MILLIGRAM DAILY;
     Route: 048

REACTIONS (3)
  - Menorrhagia [Unknown]
  - Metrorrhagia [Unknown]
  - Device expulsion [Recovered/Resolved]
